FAERS Safety Report 23130938 (Version 4)
Quarter: 2025Q4

REPORT INFORMATION
  Report Type: Report from Study
  Country: US (occurrence: US)
  Receive Date: 20231031
  Receipt Date: 20251208
  Transmission Date: 20260118
  Serious: Yes (Hospitalization)
  Sender: ABBVIE
  Company Number: US-ABBVIE-5475493

PATIENT
  Age: 30 Year
  Sex: Female

DRUGS (1)
  1. HUMIRA [Suspect]
     Active Substance: ADALIMUMAB
     Indication: Crohn^s disease
     Dosage: CITRATE FREE
     Route: 058
     Dates: start: 20211111

REACTIONS (8)
  - Morning sickness [Unknown]
  - Injection site swelling [Unknown]
  - Injection site pain [Unknown]
  - Diarrhoea haemorrhagic [Not Recovered/Not Resolved]
  - Illness [Unknown]
  - Maternal exposure during pregnancy [Unknown]
  - Abdominal discomfort [Unknown]
  - Vomiting [Unknown]
